FAERS Safety Report 17344277 (Version 1)
Quarter: 2020Q1

REPORT INFORMATION
  Report Type: Spontaneous
  Country: US (occurrence: US)
  Receive Date: 20200129
  Receipt Date: 20200129
  Transmission Date: 20200409
  Serious: No
  Sender: FDA-Public Use
  Company Number: US-ALLERGAN-1929162US

PATIENT
  Sex: Female

DRUGS (15)
  1. JUVEDERM ULTRA XC [Concomitant]
     Active Substance: HYALURONIC ACID\LIDOCAINE HYDROCHLORIDE
     Dosage: 0.3 ML, SINGLE
     Dates: start: 20190529, end: 20190529
  2. BOTOX COSMETIC [Suspect]
     Active Substance: ONABOTULINUMTOXINA
     Indication: SKIN WRINKLING
     Dosage: 1 UNITS, SINGLE
     Dates: start: 20190529, end: 20190529
  3. ESTRADIOL. [Concomitant]
     Active Substance: ESTRADIOL
  4. CLARITIN [Concomitant]
     Active Substance: LORATADINE
  5. FISH OIL [Concomitant]
     Active Substance: FISH OIL
  6. VITAMINS [Concomitant]
     Active Substance: VITAMINS
  7. BOTOX COSMETIC [Suspect]
     Active Substance: ONABOTULINUMTOXINA
     Indication: SKIN WRINKLING
     Dosage: 6 UNITS, SINGLE
     Dates: start: 20190529, end: 20190529
  8. BOTOX COSMETIC [Suspect]
     Active Substance: ONABOTULINUMTOXINA
     Indication: SKIN WRINKLING
     Dosage: 7 UNITS, SINGLE
     Dates: start: 20190529, end: 20190529
  9. JUVEDERM ULTRA XC [Concomitant]
     Active Substance: HYALURONIC ACID\LIDOCAINE HYDROCHLORIDE
     Dosage: 0.2 ML, SINGLE
     Dates: start: 20190529, end: 20190529
  10. DESVENLAFAXINE. [Concomitant]
     Active Substance: DESVENLAFAXINE
     Dosage: 100 MG
  11. JUVEDERM ULTRA XC [Concomitant]
     Active Substance: HYALURONIC ACID\LIDOCAINE HYDROCHLORIDE
     Dosage: 0.5 ML, SINGLE
     Dates: start: 20190529, end: 20190529
  12. PROGESTERONE. [Concomitant]
     Active Substance: PROGESTERONE
  13. CLONAZEPAM. [Concomitant]
     Active Substance: CLONAZEPAM
  14. JUVEDERM ULTRA XC [Concomitant]
     Active Substance: HYALURONIC ACID\LIDOCAINE HYDROCHLORIDE
     Dosage: 0.1 ML, SINGLE
     Dates: start: 20190618, end: 20190618
  15. JUVEDERM ULTRA XC [Concomitant]
     Active Substance: HYALURONIC ACID\LIDOCAINE HYDROCHLORIDE
     Indication: FACIAL ASYMMETRY
     Dosage: 0.2 ML, SINGLE
     Dates: start: 20190618, end: 20190618

REACTIONS (6)
  - Facial asymmetry [Recovering/Resolving]
  - Off label use [Unknown]
  - Speech disorder [Recovering/Resolving]
  - Facial spasm [Recovering/Resolving]
  - Demyelination [Recovering/Resolving]
  - Facial paralysis [Recovering/Resolving]
